FAERS Safety Report 18642138 (Version 1)
Quarter: 2020Q4

REPORT INFORMATION
  Report Type: Spontaneous
  Country: US (occurrence: US)
  Receive Date: 20201220
  Receipt Date: 20201220
  Transmission Date: 20210114
  Serious: Yes (Other)
  Sender: FDA-Public Use
  Company Number: None

PATIENT
  Age: 21 Year
  Sex: Female
  Weight: 83.46 kg

DRUGS (7)
  1. AMITRIPTYLINE [Concomitant]
     Active Substance: AMITRIPTYLINE
  2. NEXPLANON [Suspect]
     Active Substance: ETONOGESTREL
     Dates: start: 20200729
  3. VITAMIN D3 [Concomitant]
     Active Substance: CHOLECALCIFEROL
  4. IRON [Concomitant]
     Active Substance: IRON
  5. MAGNESIUM [Concomitant]
     Active Substance: MAGNESIUM
  6. L-TYROSINE [Concomitant]
     Active Substance: TYROSINE
  7. L-METHYLFOLATE [Concomitant]
     Active Substance: LEVOMEFOLIC ACID

REACTIONS (4)
  - Menorrhagia [None]
  - Complication associated with device [None]
  - Anaemia [None]
  - Pain [None]

NARRATIVE: CASE EVENT DATE: 20201103
